FAERS Safety Report 22174702 (Version 2)
Quarter: 2023Q2

REPORT INFORMATION
  Report Type: Spontaneous
  Country: JP (occurrence: JP)
  Receive Date: 20230405
  Receipt Date: 20230414
  Transmission Date: 20230722
  Serious: Yes (Other)
  Sender: FDA-Public Use
  Company Number: JP-CHUGAI-2023010881

PATIENT
  Age: 74 Year
  Sex: Male

DRUGS (1)
  1. ENSPRYNG [Suspect]
     Active Substance: SATRALIZUMAB-MWGE
     Indication: Neuromyelitis optica spectrum disorder
     Dosage: UNK
     Route: 058
     Dates: start: 202206

REACTIONS (1)
  - Psoas abscess [Unknown]
